FAERS Safety Report 17758081 (Version 4)
Quarter: 2021Q2

REPORT INFORMATION
  Report Type: Spontaneous
  Country: JP (occurrence: JP)
  Receive Date: 20200507
  Receipt Date: 20210421
  Transmission Date: 20210716
  Serious: Yes (Hospitalization, Other)
  Sender: FDA-Public Use
  Company Number: JP-ELI_LILLY_AND_COMPANY-JP202004004111

PATIENT
  Age: 71 Year
  Sex: Female
  Weight: 43.1 kg

DRUGS (6)
  1. GEMCITABINE HYDROCHLORIDE. [Suspect]
     Active Substance: GEMCITABINE HYDROCHLORIDE
     Indication: SQUAMOUS CELL CARCINOMA OF LUNG
     Dosage: 1250 MG, OTHER
     Route: 041
     Dates: start: 20200327, end: 20200422
  2. MAGNESIUM [Concomitant]
     Active Substance: MAGNESIUM
     Indication: RENAL DISORDER PROPHYLAXIS
     Dosage: UNK
     Dates: start: 20200327, end: 20200630
  3. CISPLATIN. [Suspect]
     Active Substance: CISPLATIN
     Indication: SQUAMOUS CELL CARCINOMA OF LUNG
     Dosage: 80 MG, OTHER
     Route: 041
     Dates: start: 20200327
  4. NECITUMUMAB [Suspect]
     Active Substance: NECITUMUMAB
     Indication: SQUAMOUS CELL CARCINOMA OF LUNG
     Dosage: 800 MG, OTHER
     Route: 041
     Dates: start: 20200327
  5. GEMCITABINE HYDROCHLORIDE. [Suspect]
     Active Substance: GEMCITABINE HYDROCHLORIDE
     Dosage: 1000 MG, OTHER
     Route: 041
     Dates: start: 20200422, end: 20200630
  6. GEMCITABINE HYDROCHLORIDE. [Suspect]
     Active Substance: GEMCITABINE HYDROCHLORIDE
     Dosage: 800 MG, OTHER
     Route: 041
     Dates: start: 20200630

REACTIONS (9)
  - Thrombocytopenia [Recovered/Resolved]
  - Malignant neoplasm progression [Unknown]
  - Hypophosphataemia [Unknown]
  - Thrombocytopenia [Recovered/Resolved]
  - Hypomagnesaemia [Unknown]
  - Thrombocytopenia [Recovered/Resolved]
  - White blood cell count decreased [Recovered/Resolved]
  - Neutrophil count decreased [Recovered/Resolved]
  - Thrombocytopenia [Recovered/Resolved]

NARRATIVE: CASE EVENT DATE: 20200408
